FAERS Safety Report 6958962-4 (Version None)
Quarter: 2010Q3

REPORT INFORMATION
  Report Type: 
  Country: None (occurrence: None)
  Receive Date: 20100831
  Receipt Date: 20100819
  Transmission Date: 20110219
  Serious: Yes (Other)
  Sender: FDA-Public Use
  Company Number: US-PFIZER INC-2010105522

PATIENT
  Sex: Female
  Weight: 117.1 kg

DRUGS (17)
  1. NEURONTIN [Suspect]
     Indication: SCIATICA
     Dosage: 2400 MG, UNK
     Route: 048
     Dates: start: 20090101
  2. NEURONTIN [Suspect]
     Indication: NEUROPATHY PERIPHERAL
     Dosage: 1800 MG, UNK
  3. NEURONTIN [Suspect]
     Dosage: 300 MG, 2X/DAY
  4. EFFEXOR [Suspect]
     Indication: DEPRESSION
     Dosage: 225 MG, 1X/DAY
     Route: 048
  5. SEROQUEL [Suspect]
     Dosage: UNK
  6. LEVOTHYROXINE [Concomitant]
     Dosage: UNK
     Route: 048
  7. BUSPAR [Concomitant]
     Dosage: 10 MG, 2X/DAY
     Route: 048
  8. NEXIUM [Concomitant]
     Dosage: 20 MG, DAILY
     Route: 048
  9. SINGULAIR ^DIECKMANN^ [Concomitant]
     Dosage: 10 MG, DAILY
     Route: 048
  10. ABILIFY [Concomitant]
     Dosage: 5 MG, DAILY
     Route: 048
  11. ACIDOPHILUS [Concomitant]
     Dosage: UNK
     Route: 048
  12. DIFLUCAN [Concomitant]
     Dosage: UNK
     Route: 048
  13. TRIAMCINOLONE ACETONIDE W/NYSTATIN [Concomitant]
     Dosage: UNK
     Route: 048
  14. FLOVENT [Concomitant]
     Dosage: UNK
  15. ATROVENT [Concomitant]
     Dosage: UNK
  16. ATIVAN [Concomitant]
     Dosage: UNK
     Route: 048
  17. LITHIUM CARBONATE [Concomitant]
     Dosage: UNK

REACTIONS (12)
  - AGORAPHOBIA [None]
  - ANXIETY [None]
  - EMOTIONAL DISORDER [None]
  - FEAR [None]
  - FEELING ABNORMAL [None]
  - GLUCOSE TOLERANCE IMPAIRED [None]
  - MALAISE [None]
  - PARANOIA [None]
  - SELF INJURIOUS BEHAVIOUR [None]
  - TACHYPHRENIA [None]
  - WEIGHT INCREASED [None]
  - WHITE BLOOD CELL COUNT INCREASED [None]
